FAERS Safety Report 4835684-7 (Version None)
Quarter: 2005Q4

REPORT INFORMATION
  Report Type: 
  Country: None (occurrence: None)
  Receive Date: 20051123
  Receipt Date: 20051010
  Transmission Date: 20060501
  Serious: Yes (Other)
  Sender: FDA-Public Use
  Company Number: 200519142GDDC

PATIENT
  Age: 77 Year
  Sex: Female
  Weight: 86 kg

DRUGS (7)
  1. ALLEGRA [Suspect]
     Indication: URTICARIA
     Route: 048
     Dates: start: 20050713, end: 20050715
  2. NEURONTIN [Concomitant]
  3. SUMETROLIM [Concomitant]
  4. AVANDIA [Concomitant]
     Indication: GLUCOSE TOLERANCE IMPAIRED
     Route: 048
     Dates: start: 20030101
  5. HYDROCHLOROTHIAZIDE [Concomitant]
     Indication: HYPERTENSION
     Route: 048
  6. ASPIRIN [Concomitant]
  7. NIFEDIDENK [Concomitant]
     Indication: HYPERTENSION
     Route: 048

REACTIONS (3)
  - HEART RATE IRREGULAR [None]
  - PALPITATIONS [None]
  - VENTRICULAR TACHYCARDIA [None]
